FAERS Safety Report 9378650 (Version 2)
Quarter: 2013Q3

REPORT INFORMATION
  Report Type: Spontaneous
  Country: IT (occurrence: IT)
  Receive Date: 20130702
  Receipt Date: 20130812
  Transmission Date: 20140515
  Serious: Yes (Hospitalization)
  Sender: FDA-Public Use
  Company Number: IT-RANBAXY-2013R1-70635

PATIENT
  Age: 50 Year
  Sex: Male

DRUGS (1)
  1. PARACETAMOL [Suspect]
     Indication: ARTHRALGIA
     Dosage: 4000 MILLIGRAMS, DAILY
     Route: 048
     Dates: start: 20130603, end: 20130606

REACTIONS (1)
  - Hepatitis acute [Recovered/Resolved]
